FAERS Safety Report 8840843 (Version 3)
Quarter: 2012Q4

REPORT INFORMATION
  Report Type: Report from Study
  Country: JP (occurrence: JP)
  Receive Date: 20121015
  Receipt Date: 20121106
  Transmission Date: 20130627
  Serious: Yes (Death, Hospitalization)
  Sender: FDA-Public Use
  Company Number: PHHO2012JP013756

PATIENT
  Age: 67 Year
  Sex: Female
  Weight: 49 kg

DRUGS (17)
  1. AFINITOR [Suspect]
     Indication: METASTATIC RENAL CELL CARCINOMA
     Dosage: UNK
     Route: 048
     Dates: start: 20100826, end: 20120509
  2. TKI258 [Suspect]
     Indication: METASTATIC RENAL CELL CARCINOMA
     Dosage: 500 mg, QD
     Route: 048
     Dates: start: 20120531, end: 20120913
  3. SUTENT [Suspect]
     Indication: METASTATIC RENAL CELL CARCINOMA
     Dosage: UNK
     Route: 048
     Dates: start: 20100126
  4. OLMETEC [Concomitant]
     Indication: HYPERTENSION
     Dosage: 40 mg, UNK
     Route: 048
     Dates: start: 20070501
  5. CONIEL [Concomitant]
     Indication: HYPERTENSION
     Dosage: 8 mg, UNK
     Route: 048
     Dates: start: 20070501
  6. LASIX [Concomitant]
     Indication: OEDEMA PERIPHERAL
     Dosage: 40 mg, UNK
     Route: 048
     Dates: start: 20111102
  7. OXYCONTIN [Concomitant]
     Indication: CANCER PAIN
     Dosage: 5 mg, UNK
     Route: 048
     Dates: start: 20111122
  8. LOXONIN [Concomitant]
     Indication: CANCER PAIN
     Dosage: 60 mg, UNK
     Route: 048
     Dates: start: 20111130
  9. TAKEPRON [Concomitant]
     Indication: GASTRITIS PROPHYLAXIS
     Dosage: 15 mg, UNK
     Route: 048
     Dates: start: 20120321
  10. LOPERAMIDE [Concomitant]
     Indication: DIARRHOEA
     Dosage: 2 mg, UNK
     Route: 048
     Dates: start: 20120603
  11. NAUZELIN [Concomitant]
     Indication: NAUSEA
     Dosage: 30 mg, UNK
     Route: 048
     Dates: start: 20120607
  12. DIOVAN [Concomitant]
     Indication: HYPERTENSION
     Dosage: 80 mg, UNK
     Route: 048
     Dates: start: 20120611, end: 20120913
  13. CRAVIT [Concomitant]
     Indication: DRY EYE
     Dosage: UNK
     Route: 047
     Dates: start: 20120709
  14. PROTOPIC [Concomitant]
     Indication: DERMATITIS ACNEIFORM
     Dosage: UNK
     Route: 061
     Dates: start: 20120726
  15. MINOCYCLINE HYDROCHLORIDE [Concomitant]
     Indication: DERMATITIS ACNEIFORM
     Dosage: 100 mg, UNK
     Route: 048
     Dates: start: 20120823, end: 20120905
  16. ACHROMYCIN [Concomitant]
     Indication: DERMATITIS ACNEIFORM
     Dosage: 500 mg, UNK
     Route: 048
     Dates: start: 20120906, end: 20120913
  17. FLUITRAN [Concomitant]
     Indication: HYPERTENSION
     Dosage: 2 mg, UNK
     Route: 048
     Dates: start: 20120907, end: 20120913

REACTIONS (4)
  - Generalised oedema [Fatal]
  - Vomiting [Recovering/Resolving]
  - Anaemia [Recovered/Resolved]
  - Decreased appetite [Not Recovered/Not Resolved]
